FAERS Safety Report 6693058-0 (Version None)
Quarter: 2010Q2

REPORT INFORMATION
  Report Type: 
  Country: None (occurrence: None)
  Receive Date: 20100420
  Receipt Date: 20100407
  Transmission Date: 20101027
  Serious: Yes (Hospitalization, Disabling)
  Sender: FDA-Public Use
  Company Number: 2009AC000332

PATIENT
  Age: 53 Year
  Sex: Female

DRUGS (122)
  1. DIGOXIN [Suspect]
     Dosage: 0.25 MG; QD; PO
     Route: 048
     Dates: start: 19940101
  2. DIGOXIN [Suspect]
     Dosage: 0.25 MG; QD; PO
     Route: 048
     Dates: start: 20041001, end: 20080401
  3. DIGOXIN [Suspect]
     Dosage: 0.25 MG; QOD; PO
     Route: 048
     Dates: start: 20071001, end: 20080101
  4. DIGOXIN [Suspect]
     Dosage: 0.5 MG; TIW;
     Dates: start: 20071001, end: 20080101
  5. ZAROXOLYN [Concomitant]
  6. ACCUPRIL [Concomitant]
  7. LASIX [Concomitant]
  8. OXYCONTIN [Concomitant]
  9. ADVAIR DISKUS 100/50 [Concomitant]
  10. AMBIEN [Concomitant]
  11. SOMA [Concomitant]
  12. ALDACTONE [Concomitant]
  13. PERCOCET [Concomitant]
  14. CLIMARA [Concomitant]
  15. ZOCOR [Concomitant]
  16. NEXIUM [Concomitant]
  17. JANUMET [Concomitant]
  18. METHOTREXATE [Concomitant]
  19. BYETTA [Concomitant]
  20. DOXAZOSIN [Concomitant]
  21. PROVIGIL [Concomitant]
  22. PREDNISONE [Concomitant]
  23. INDERAL [Concomitant]
  24. FOLIC ACID [Concomitant]
  25. CEPHALEXIN [Concomitant]
  26. FLUOCINONIDE [Concomitant]
  27. CLOBETASOL PROPIONATE [Concomitant]
  28. GLIMEPIRIDE [Concomitant]
  29. LYRICA [Concomitant]
  30. CARISOPRODOL [Concomitant]
  31. VANIQA [Concomitant]
  32. MIRAPEX [Concomitant]
  33. AMOXICILLIN [Concomitant]
  34. OXYCODONE [Concomitant]
  35. ALPRAZOLAM [Concomitant]
  36. FLUOCINONIDE [Concomitant]
  37. CIPROFLOXACIN [Concomitant]
  38. PHENAZOPYRIDINE HCL TAB [Concomitant]
  39. OMNICEF [Concomitant]
  40. SKELAXIN [Concomitant]
  41. LEVAQUIN [Concomitant]
  42. METRONIDAZOLE [Concomitant]
  43. ONDANSETRON [Concomitant]
  44. POTASSIUM CHLORIDE [Concomitant]
  45. DOXYCYCLINE [Concomitant]
  46. PROAIR HFA [Concomitant]
  47. AVELOX [Concomitant]
  48. LEXAPRO [Concomitant]
  49. ASTELIN [Concomitant]
  50. HYDROCODONE BITARTRATE [Concomitant]
  51. ASMANEX TWISTHALER [Concomitant]
  52. CLOBETASOL PROPIONATE [Concomitant]
  53. DIPHENOXYLATE-ATRO [Concomitant]
  54. PANGESTYME [Concomitant]
  55. TRIAMCINOLONE [Concomitant]
  56. NASONEX [Concomitant]
  57. SIMVASTATIN [Concomitant]
  58. METOLAZONE [Concomitant]
  59. LUNESTA [Concomitant]
  60. HYDROMORPHONE HCL [Concomitant]
  61. PENICILLIN [Concomitant]
  62. CLIMARA [Concomitant]
  63. CATAPRES [Concomitant]
  64. CHOLINE MAG TRISAL [Concomitant]
  65. CLONAZEPAM [Concomitant]
  66. AVINZA [Concomitant]
  67. OXYCODONE HCL AND ACETAMINOPHEN [Concomitant]
  68. AZITHROMYCIN [Concomitant]
  69. PROAIR HFA [Concomitant]
  70. ECONAZOLE NITRATE [Concomitant]
  71. METHYLIN [Concomitant]
  72. DIPHENOXYLATE [Concomitant]
  73. AEROCHAMBER INHALER [Concomitant]
  74. LIDOCAINE [Concomitant]
  75. MORPHINE SULFATE [Concomitant]
  76. NYSTATIN [Concomitant]
  77. ESTRADIOL [Concomitant]
  78. VOLTAREN [Concomitant]
  79. WELLBUTRIN [Concomitant]
  80. K-DUR [Concomitant]
  81. PANCREATIC ENZYME [Concomitant]
  82. PRAVACHOL [Concomitant]
  83. LODINE [Concomitant]
  84. PRILOSEC [Concomitant]
  85. LOPID [Concomitant]
  86. BENTYL [Concomitant]
  87. ESTRADERM [Concomitant]
  88. TRICOR [Concomitant]
  89. FOSAMAX [Concomitant]
  90. ZOFRAN [Concomitant]
  91. VYTORIN [Concomitant]
  92. RELAFEN [Concomitant]
  93. LOZOL [Concomitant]
  94. ANTIDEPRESSANT [Concomitant]
  95. PANCREATIC ENZYME [Concomitant]
  96. DOXAZOSIN [Concomitant]
  97. PROVIGIL [Concomitant]
  98. FOLIC ACID [Concomitant]
  99. INDERAL [Concomitant]
  100. LASIX [Concomitant]
  101. PROZAC [Concomitant]
  102. DILAUDID [Concomitant]
  103. ALPRAZOLAM [Concomitant]
  104. PROPRANOLOL [Concomitant]
  105. OMNICEF [Concomitant]
  106. PANGESTYME [Concomitant]
  107. LEVAQUIN [Concomitant]
  108. NABUMETONE [Concomitant]
  109. CYMBALTA [Concomitant]
  110. MIRAPEX [Concomitant]
  111. LONOX [Concomitant]
  112. ESTAZOLAM [Concomitant]
  113. FLUOXETINE [Concomitant]
  114. MOXIFLOXACIN HCL [Concomitant]
  115. LOVAZA [Concomitant]
  116. CIRPROFLOXACIN [Concomitant]
  117. PROVIGIL [Concomitant]
  118. METFORMIN [Concomitant]
  119. KETOPROFEN [Concomitant]
  120. BONIVA [Concomitant]
  121. SALMETEROL [Concomitant]
  122. FLURAZEPAM [Concomitant]

REACTIONS (68)
  - ACCIDENT AT WORK [None]
  - ANXIETY [None]
  - AORTIC VALVE INCOMPETENCE [None]
  - AORTIC VALVE SCLEROSIS [None]
  - AORTIC VALVE STENOSIS [None]
  - ARTHRITIS [None]
  - ASTHMA [None]
  - BLOOD GLUCOSE INCREASED [None]
  - BREAST CALCIFICATIONS [None]
  - BREAST HYPERPLASIA [None]
  - BURSITIS [None]
  - CARDIAC FLUTTER [None]
  - CARDIOACTIVE DRUG LEVEL DECREASED [None]
  - CHEST PAIN [None]
  - COLITIS [None]
  - DEHYDRATION [None]
  - DEPRESSED MOOD [None]
  - DIARRHOEA [None]
  - DIVERTICULITIS [None]
  - DYSPEPSIA [None]
  - DYSPHAGIA [None]
  - DYSPNOEA [None]
  - EXCORIATION [None]
  - FALL [None]
  - FAMILIAL TREMOR [None]
  - FEAR [None]
  - FIBROMYALGIA [None]
  - FLUID RETENTION [None]
  - FOOT FRACTURE [None]
  - GAIT DISTURBANCE [None]
  - GASTRITIS [None]
  - HYPERHIDROSIS [None]
  - HYPOKALAEMIA [None]
  - HYPOTENSION [None]
  - IMPAIRED HEALING [None]
  - INJURY [None]
  - INTERVERTEBRAL DISC DEGENERATION [None]
  - INTERVERTEBRAL DISC PROTRUSION [None]
  - JOINT DISLOCATION [None]
  - JOINT SPRAIN [None]
  - MITRAL VALVE CALCIFICATION [None]
  - MITRAL VALVE INCOMPETENCE [None]
  - MUSCULOSKELETAL DISCOMFORT [None]
  - NEPHROCALCINOSIS [None]
  - NEUROPATHY PERIPHERAL [None]
  - OROPHARYNGEAL PAIN [None]
  - PALPITATIONS [None]
  - PANCREATITIS RELAPSING [None]
  - PANNICULITIS [None]
  - PHARYNGITIS [None]
  - PNEUMONIA [None]
  - PULMONARY HYPERTENSION [None]
  - PULMONARY VALVE INCOMPETENCE [None]
  - RENAL FAILURE ACUTE [None]
  - RESTLESS LEGS SYNDROME [None]
  - RHINITIS ALLERGIC [None]
  - SLEEP DISORDER [None]
  - SMALL INTESTINAL OBSTRUCTION [None]
  - SOCIAL AVOIDANT BEHAVIOUR [None]
  - SPONDYLOLISTHESIS [None]
  - STRESS [None]
  - STRESS FRACTURE [None]
  - THERAPEUTIC AGENT TOXICITY [None]
  - TINEA VERSICOLOUR [None]
  - TRICUSPID VALVE INCOMPETENCE [None]
  - TYPE 2 DIABETES MELLITUS [None]
  - VARICOSE VEIN [None]
  - WEIGHT INCREASED [None]
